FAERS Safety Report 15867508 (Version 2)
Quarter: 2019Q1

REPORT INFORMATION
  Report Type: Report from Study
  Country: DZ (occurrence: DZ)
  Receive Date: 20190125
  Receipt Date: 20190227
  Transmission Date: 20190417
  Serious: Yes (Death, Hospitalization, Other)
  Sender: FDA-Public Use
  Company Number: DZ-BAYER-2019-017460

PATIENT
  Sex: Female

DRUGS (1)
  1. BETAFERON [Suspect]
     Active Substance: INTERFERON BETA-1B
     Indication: MULTIPLE SCLEROSIS
     Dosage: 1 DF
     Route: 058
     Dates: start: 20190115, end: 201901

REACTIONS (2)
  - Coma [None]
  - Death [Fatal]

NARRATIVE: CASE EVENT DATE: 20190121
